FAERS Safety Report 5923017-4 (Version None)
Quarter: 2008Q4

REPORT INFORMATION
  Report Type: 
  Country: None (occurrence: None)
  Receive Date: 20081018
  Receipt Date: 20081008
  Transmission Date: 20090506
  Serious: Yes (Life-Threatening, Hospitalization)
  Sender: FDA-Public Use
  Company Number: GB-PFIZER INC-2008076099

PATIENT
  Sex: Male
  Weight: 111 kg

DRUGS (6)
  1. SALAZOPYRIN EN TABLETS [Suspect]
     Indication: RHEUMATOID ARTHRITIS
     Route: 048
     Dates: start: 20080528, end: 20080714
  2. PREDNISOLONE [Concomitant]
     Route: 048
  3. FOSAMAX [Concomitant]
     Route: 048
  4. ISOSORBIDE MONONITRATE [Concomitant]
     Route: 048
  5. ACETYLSALICYLIC ACID SRT [Concomitant]
     Route: 048
  6. LANSOPRAZOLE [Concomitant]
     Route: 048

REACTIONS (5)
  - ATRIAL FIBRILLATION [None]
  - MALAISE [None]
  - NEUTROPENIC SEPSIS [None]
  - NEUTROPHIL COUNT DECREASED [None]
  - PNEUMONIA [None]
